FAERS Safety Report 5989628-5 (Version None)
Quarter: 2008Q4

REPORT INFORMATION
  Report Type: 
  Country: None (occurrence: None)
  Receive Date: 20081210
  Receipt Date: 20081125
  Transmission Date: 20090506
  Serious: Yes (Death)
  Sender: FDA-Public Use
  Company Number: GB-GENENTECH-271952

PATIENT
  Age: 33 Year
  Sex: Female

DRUGS (9)
  1. XOLAIR [Suspect]
     Indication: DRUG USE FOR UNKNOWN INDICATION
     Dosage: 150 MG, 2/WEEK
     Route: 058
     Dates: start: 20080423
  2. STEROIDS NOS [Concomitant]
     Indication: ASTHMA
  3. BRONCHODILATORS [Concomitant]
     Indication: ASTHMA
  4. PREDNISOLONE [Concomitant]
     Indication: DRUG USE FOR UNKNOWN INDICATION
     Dosage: 20 MG, UNK
     Route: 048
  5. TERBUTALINE SULFATE [Concomitant]
     Indication: DRUG USE FOR UNKNOWN INDICATION
     Dosage: 8 MG, UNK
  6. LORATADINE [Concomitant]
     Indication: DRUG USE FOR UNKNOWN INDICATION
     Dosage: 10 MG, UNK
     Route: 048
  7. MONTELUKAST SODIUM [Concomitant]
     Indication: DRUG USE FOR UNKNOWN INDICATION
     Dosage: 10 MG, UNK
     Route: 048
  8. ATROVENT [Concomitant]
     Indication: DRUG USE FOR UNKNOWN INDICATION
  9. METHOTREXATE [Concomitant]
     Indication: DRUG USE FOR UNKNOWN INDICATION

REACTIONS (1)
  - ASTHMA [None]
